FAERS Safety Report 8879828 (Version 2)
Quarter: 2012Q4

REPORT INFORMATION
  Report Type: 
  Country: DE (occurrence: DE)
  Receive Date: 20121101
  Receipt Date: 20121108
  Transmission Date: 20130627
  Serious: Yes (Death, Hospitalization)
  Sender: FDA-Public Use
  Company Number: DE-BAYER-2012-110265

PATIENT
  Age: 89 Year
  Sex: Female
  Weight: 59.86 kg

DRUGS (15)
  1. XARELTO [Suspect]
     Indication: CEREBROVASCULAR ACCIDENT PROPHYLAXIS
     Dosage: 20 mg, UNK
     Route: 048
     Dates: start: 20121017, end: 20121018
  2. XARELTO [Interacting]
     Indication: ATRIAL FIBRILLATION
  3. ASS [Interacting]
     Dosage: UNK
     Dates: end: 20121016
  4. DIGIMERCK [Concomitant]
     Dosage: 1/2 per day
  5. PANTOZOL [Concomitant]
     Dosage: 40 mg, QD
  6. BELOC-ZOK [Concomitant]
     Dosage: 1/2 per day
  7. NORSPAN [Concomitant]
     Dosage: 5 ug/h TTS (once weekly)
  8. ALLOPURINOL [Concomitant]
     Dosage: 100
  9. TAVOR [LORAZEPAM] [Concomitant]
     Dosage: 1 mg, UNK
  10. ATACAND [CANDESARTAN CILEXETIL] [Concomitant]
     Dosage: 16 mg, UNK
  11. AMLODIPINE [Concomitant]
     Dosage: 5 mg, UNK
  12. NOVAMINOSULFON [Concomitant]
     Dosage: 500 mg, UNK
  13. MAGNESIUM VERLA [Concomitant]
  14. MIRTAZAPINE [Concomitant]
     Dosage: 15 mg, UNK
  15. TORASEMIDE [Concomitant]
     Dosage: 10 mg, UNK

REACTIONS (3)
  - Cerebellar haemorrhage [Fatal]
  - Coma [Fatal]
  - Brain herniation [Fatal]
